FAERS Safety Report 19661235 (Version 2)
Quarter: 2021Q3

REPORT INFORMATION
  Report Type: Spontaneous
  Country: AU (occurrence: AU)
  Receive Date: 20210805
  Receipt Date: 20210812
  Transmission Date: 20211014
  Serious: Yes (Other)
  Sender: FDA-Public Use
  Company Number: AU-PFIZER INC-202100971320

PATIENT
  Age: 33 Year

DRUGS (1)
  1. MYLOTARG [Suspect]
     Active Substance: GEMTUZUMAB OZOGAMICIN
     Indication: ACUTE MYELOID LEUKAEMIA
     Dosage: UNK

REACTIONS (6)
  - Abdominal distension [Unknown]
  - Wound complication [Unknown]
  - Blood bilirubin increased [Unknown]
  - Oedema [Unknown]
  - Neutropenic colitis [Unknown]
  - Venoocclusive disease [Unknown]
